FAERS Safety Report 5523549-7 (Version None)
Quarter: 2007Q4

REPORT INFORMATION
  Report Type: 
  Country: None (occurrence: None)
  Receive Date: 20071119
  Receipt Date: 20071119
  Transmission Date: 20080405
  Serious: Yes (Life-Threatening, Hospitalization)
  Sender: FDA-Public Use
  Company Number: None

PATIENT
  Age: 70 Year
  Sex: Female

DRUGS (21)
  1. WARFARIN SODIUM [Suspect]
     Dosage: DAILY PO
     Route: 048
  2. ASPIRIN [Suspect]
     Dosage: DAILY PO
     Route: 048
  3. DIGOXIN [Concomitant]
  4. ZYRTEC [Concomitant]
  5. PROTONIX [Concomitant]
  6. ATENOLOL [Concomitant]
  7. VICODIN [Concomitant]
  8. M.V.I. [Concomitant]
  9. ZOCOR [Concomitant]
  10. SYNTHROID [Concomitant]
  11. ULTRAM [Concomitant]
  12. SINGULAIR [Concomitant]
  13. BUSPAR [Concomitant]
  14. COLACE [Concomitant]
  15. DILTIAZEM [Concomitant]
  16. ZINC [Concomitant]
  17. PROZAC [Concomitant]
  18. TRAZODONE HCL [Concomitant]
  19. BENTYL [Concomitant]
  20. FLONASE [Concomitant]
  21. VITAMIN D WITH CALCIUM SUPPLEMENT [Concomitant]

REACTIONS (6)
  - COAGULOPATHY [None]
  - DEAFNESS [None]
  - FALL [None]
  - GAIT DISTURBANCE [None]
  - HEADACHE [None]
  - SUBDURAL HAEMATOMA [None]
